FAERS Safety Report 13263669 (Version 1)
Quarter: 2017Q1

REPORT INFORMATION
  Report Type: Spontaneous
  Country: US (occurrence: US)
  Receive Date: 20170223
  Receipt Date: 20170223
  Transmission Date: 20170428
  Serious: No
  Sender: FDA-Public Use
  Company Number: US-BAYER-2017-035951

PATIENT
  Sex: Female

DRUGS (3)
  1. CLARITIN [Suspect]
     Active Substance: LORATADINE
     Indication: PHARYNGEAL DISORDER
  2. CLARITIN [Suspect]
     Active Substance: LORATADINE
     Indication: PRODUCTIVE COUGH
     Dosage: UNK
     Route: 065
  3. CLARITIN [Suspect]
     Active Substance: LORATADINE
     Indication: COUGH

REACTIONS (1)
  - Drug ineffective for unapproved indication [Unknown]
